FAERS Safety Report 19676236 (Version 1)
Quarter: 2021Q3

REPORT INFORMATION
  Report Type: Spontaneous
  Country: FR (occurrence: FR)
  Receive Date: 20210809
  Receipt Date: 20210809
  Transmission Date: 20211014
  Serious: Yes (Hospitalization, Other)
  Sender: FDA-Public Use
  Company Number: FR-TEVA-2021-FR-1939979

PATIENT
  Age: 61 Year
  Sex: Male

DRUGS (7)
  1. VISIPAQUE [Suspect]
     Active Substance: IODIXANOL
     Dosage: ROUTE OF ADMINISTRATION :INTRAVENOUS.
     Route: 051
     Dates: start: 20210309, end: 20210309
  2. LANSOPRAZOLE. [Concomitant]
     Active Substance: LANSOPRAZOLE
     Indication: PRODUCT USED FOR UNKNOWN INDICATION
     Dosage: ROUTE OF ADMINISTRATION : PER OS ; UNIT DOSE: 15MG
     Route: 048
     Dates: start: 20210309
  3. CARVEDILOL. [Concomitant]
     Active Substance: CARVEDILOL
     Indication: ACUTE CORONARY SYNDROME
     Dosage: 1 DOSAGE FORMS DAILY; 0.5 TABLET MORNING AND EVENING?ROUTE OF ADMINISTRATION: PER OS.
     Route: 048
     Dates: start: 20210309
  4. KARDEGIC [Concomitant]
     Active Substance: ASPIRIN DL-LYSINE
     Indication: ACUTE CORONARY SYNDROME
     Dosage: ROUTE OF ADMINISTRATION : PER OS ; UNIT DOSE: 1 DF
     Route: 048
     Dates: start: 20210309
  5. TICAGRELOR. [Concomitant]
     Active Substance: TICAGRELOR
     Indication: ACUTE CORONARY SYNDROME
     Dosage: ROUTE OF ADMINISTRATION : PER OS ; UNIT DOSE: 180MG
     Route: 048
     Dates: start: 20210309
  6. ATORVASTATINE [Suspect]
     Active Substance: ATORVASTATIN
     Indication: ACUTE CORONARY SYNDROME
     Dosage: ROUTE OF ADMINISTRATION : PER OS .; UNIT DOSE: 80MG
     Route: 048
     Dates: start: 20210309, end: 20210407
  7. VISIPAQUE [Suspect]
     Active Substance: IODIXANOL
     Indication: ANGIOCARDIOGRAM
     Dosage: ROUTE OF ADMINISTRATION :INTRAVENOUS.
     Route: 051
     Dates: start: 20210317, end: 20210317

REACTIONS (3)
  - Rash [Recovered/Resolved]
  - Eosinophilia [Recovered/Resolved]
  - Hepatic cytolysis [Recovering/Resolving]

NARRATIVE: CASE EVENT DATE: 20210318
